FAERS Safety Report 24987840 (Version 1)
Quarter: 2025Q1

REPORT INFORMATION
  Report Type: Report from Study
  Country: GB (occurrence: GB)
  Receive Date: 20250219
  Receipt Date: 20250219
  Transmission Date: 20250408
  Serious: Yes (Other)
  Sender: ABBVIE
  Company Number: GB-ABBVIE-6138673

PATIENT
  Sex: Female

DRUGS (1)
  1. SKYRIZI [Suspect]
     Active Substance: RISANKIZUMAB-RZAA
     Indication: Psoriasis
     Dosage: 150MG/1ML
     Route: 058

REACTIONS (3)
  - Irritable bowel syndrome [Unknown]
  - Spinal disorder [Unknown]
  - Abdominal discomfort [Unknown]
